FAERS Safety Report 9796955 (Version 1)
Quarter: 2014Q1

REPORT INFORMATION
  Report Type: Spontaneous
  Country: US (occurrence: None)
  Receive Date: 20140102
  Receipt Date: 20140102
  Transmission Date: 20141002
  Serious: No
  Sender: FDA-Public Use
  Company Number: None

PATIENT
  Age: 49 Year
  Sex: Female

DRUGS (1)
  1. CIPROFLOXACIN [Suspect]
     Indication: GASTROINTESTINAL BACTERIAL INFECTION
     Dosage: 1 PILL
     Route: 048
     Dates: start: 20121206, end: 20130130

REACTIONS (11)
  - Dyspnoea exertional [None]
  - Palpitations [None]
  - Pain in extremity [None]
  - Tendon pain [None]
  - Tendon disorder [None]
  - Swelling [None]
  - Dysgraphia [None]
  - Paraesthesia [None]
  - Sensory loss [None]
  - Gait disturbance [None]
  - Pain [None]
